FAERS Safety Report 5418180-8 (Version None)
Quarter: 2007Q3

REPORT INFORMATION
  Report Type: 
  Country: None (occurrence: None)
  Receive Date: 20070817
  Receipt Date: 20070803
  Transmission Date: 20080115
  Serious: Yes (Death)
  Sender: FDA-Public Use
  Company Number: PL-JNJFOC-20060701634

PATIENT
  Sex: Male
  Weight: 80 kg

DRUGS (7)
  1. ABCIXIMAB [Suspect]
     Route: 042
  2. ABCIXIMAB [Suspect]
     Indication: ACUTE MYOCARDIAL INFARCTION
     Route: 042
  3. RETAVASE [Suspect]
     Indication: ACUTE MYOCARDIAL INFARCTION
     Route: 042
  4. ATROPINE [Concomitant]
     Indication: BRADYCARDIA
     Route: 042
  5. CORDARONE [Concomitant]
     Indication: VENTRICULAR FIBRILLATION
     Route: 042
  6. DEXAMETHASONE [Concomitant]
     Indication: PROPHYLAXIS
     Route: 042
  7. MORPHINE [Concomitant]
     Indication: ANALGESIA
     Route: 042

REACTIONS (1)
  - GASTROINTESTINAL HAEMORRHAGE [None]
